FAERS Safety Report 24622453 (Version 2)
Quarter: 2024Q4

REPORT INFORMATION
  Report Type: Spontaneous
  Country: HR (occurrence: HR)
  Receive Date: 20241115
  Receipt Date: 20241202
  Transmission Date: 20250115
  Serious: Yes (Hospitalization)
  Sender: ROCHE
  Company Number: HR-ROCHE-10000131912

PATIENT
  Sex: Male

DRUGS (5)
  1. MYCOPHENOLATE MOFETIL [Suspect]
     Active Substance: MYCOPHENOLATE MOFETIL
     Indication: Antisynthetase syndrome
     Route: 065
     Dates: start: 2021
  2. RITUXIMAB [Suspect]
     Active Substance: RITUXIMAB
     Indication: Antisynthetase syndrome
     Dosage: 2X1 G/14 DAYS
     Route: 065
     Dates: start: 2021
  3. AZATHIOPRINE [Suspect]
     Active Substance: AZATHIOPRINE
     Indication: Antisynthetase syndrome
     Route: 042
  4. PRIMAQUINE [Concomitant]
     Active Substance: PRIMAQUINE
     Indication: Liver injury
  5. CLINDAMYCIN [Concomitant]
     Active Substance: CLINDAMYCIN
     Indication: Liver injury

REACTIONS (6)
  - Off label use [Unknown]
  - Salmonellosis [Unknown]
  - Pneumocystis jirovecii infection [Unknown]
  - Herpes zoster [Unknown]
  - JC virus infection [Unknown]
  - Secondary immunodeficiency [Unknown]
